FAERS Safety Report 15477584 (Version 2)
Quarter: 2018Q4

REPORT INFORMATION
  Report Type: Report from Study
  Country: US (occurrence: US)
  Receive Date: 20181009
  Receipt Date: 20181010
  Transmission Date: 20190205
  Serious: Yes (Other)
  Sender: FDA-Public Use
  Company Number: US-ROCHE-2176853

PATIENT
  Age: 14 Year
  Sex: Male

DRUGS (1)
  1. NUTROPIN [Suspect]
     Active Substance: SOMATROPIN
     Indication: PRODUCT USED FOR UNKNOWN INDICATION
     Dosage: DAILY; PRESENT?NUSPIN 10 INJECTION
     Route: 058
     Dates: start: 20180821

REACTIONS (9)
  - Injection site pruritus [Unknown]
  - Throat tightness [Recovered/Resolved]
  - Injection site pain [Unknown]
  - Eye swelling [Recovered/Resolved]
  - Injection site discomfort [Unknown]
  - Injection site urticaria [Unknown]
  - Pyrexia [Unknown]
  - Nasopharyngitis [Unknown]
  - Injection site erythema [Unknown]

NARRATIVE: CASE EVENT DATE: 20181002
